FAERS Safety Report 6191705-3 (Version None)
Quarter: 2009Q2

REPORT INFORMATION
  Report Type: 
  Country: None (occurrence: None)
  Receive Date: 20090515
  Receipt Date: 20090505
  Transmission Date: 20091009
  Serious: Yes (Hospitalization)
  Sender: FDA-Public Use
  Company Number: MX-AMGEN-US347032

PATIENT
  Age: 63 Year
  Sex: Male

DRUGS (4)
  1. ENBREL [Suspect]
     Indication: PSORIASIS
     Route: 058
     Dates: start: 20081101, end: 20090201
  2. ENBREL [Suspect]
     Route: 058
     Dates: start: 20090201, end: 20090401
  3. VALSARTAN [Concomitant]
     Indication: HYPERTENSION
  4. METHOTREXATE [Concomitant]
     Indication: PSORIASIS

REACTIONS (4)
  - CONJUNCTIVITIS [None]
  - DERMATITIS EXFOLIATIVE [None]
  - HERPES ZOSTER [None]
  - IMPETIGO [None]
